FAERS Safety Report 6154631-1 (Version None)
Quarter: 2009Q2

REPORT INFORMATION
  Report Type: 
  Country: None (occurrence: None)
  Receive Date: 20090414
  Receipt Date: 20090408
  Transmission Date: 20091009
  Serious: Yes (Hospitalization)
  Sender: FDA-Public Use
  Company Number: US-ELI_LILLY_AND_COMPANY-US200903007730

PATIENT
  Sex: Male
  Weight: 89.342 kg

DRUGS (15)
  1. BYETTA [Suspect]
     Indication: TYPE 2 DIABETES MELLITUS
     Dosage: 5 UG, 2/D
     Dates: start: 20081101, end: 20090128
  2. BYETTA [Suspect]
     Dosage: 10 UG, 2/D
     Dates: start: 20090119, end: 20090321
  3. LANTUS [Concomitant]
     Indication: TYPE 2 DIABETES MELLITUS
     Dosage: 75 U, 2/D
     Route: 058
  4. SYNTHROID [Concomitant]
     Indication: HYPOTHYROIDISM
     Dosage: 50 UG, DAILY (1/D)
     Route: 048
  5. ALDACTAZIDE [Concomitant]
     Indication: HYPERTENSION
     Dosage: UNK, DAILY (1/D)
     Route: 048
  6. ATENOLOL [Concomitant]
     Indication: HYPERTENSION
     Dosage: 50 MG, DAILY (1/D)
     Route: 048
  7. ALLOPURINOL [Concomitant]
     Indication: GOUT
     Dosage: 300 MG, DAILY (1/D)
     Route: 048
  8. PLAVIX [Concomitant]
     Indication: CORONARY ARTERY DISEASE
     Dosage: 75 MG, DAILY (1/D)
     Route: 048
  9. ZYRTEC [Concomitant]
     Indication: HYPERSENSITIVITY
     Dosage: 10 MG, DAILY (1/D)
     Route: 048
  10. NEXIUM [Concomitant]
     Indication: GASTROOESOPHAGEAL REFLUX DISEASE
     Dosage: 40 MG, DAILY (1/D)
     Route: 048
  11. ASPIRIN [Concomitant]
     Dosage: 81 MG, DAILY (1/D)
     Route: 048
  12. ISOSORBIDE [Concomitant]
     Dosage: 60 MG, DAILY (1/D)
  13. VYTORIN [Concomitant]
     Dosage: UNK, DAILY (1/D)
  14. COZAAR [Concomitant]
     Dosage: 100 MG, DAILY (1/D)
  15. DITROPAN [Concomitant]
     Dosage: 5 MG, DAILY (1/D)

REACTIONS (4)
  - CONSTIPATION [None]
  - DIVERTICULUM [None]
  - HEPATIC STEATOSIS [None]
  - PANCREATITIS [None]
